FAERS Safety Report 8482783-7 (Version None)
Quarter: 2012Q3

REPORT INFORMATION
  Report Type: 
  Country: None (occurrence: None)
  Receive Date: 20120702
  Receipt Date: 20120627
  Transmission Date: 20120928
  Serious: Yes (Other)
  Sender: FDA-Public Use
  Company Number: PHHY2011ES116649

PATIENT
  Age: 43 Year
  Sex: Male

DRUGS (5)
  1. RIBAVIRIN [Suspect]
     Indication: HEPATITIS
     Dosage: 1200 MG, PER DAY
  2. ATAZANAVIR [Concomitant]
     Indication: HIV INFECTION
  3. RITONAVIR [Concomitant]
     Indication: HIV INFECTION
  4. EMTRICITABINE/TENOFOVIR DISOPROXIL FUMARATE [Concomitant]
     Indication: HIV INFECTION
  5. PEGINTERFERON ALFA-2A [Suspect]
     Indication: HEPATITIS
     Dosage: 180 UG, QW
     Route: 058

REACTIONS (4)
  - SKIN EXFOLIATION [None]
  - SKIN LESION [None]
  - ECZEMA NUMMULAR [None]
  - PRURITUS GENERALISED [None]
